FAERS Safety Report 6548238-1 (Version None)
Quarter: 2010Q1

REPORT INFORMATION
  Report Type: 
  Country: None (occurrence: None)
  Receive Date: 20100124
  Receipt Date: 20090409
  Transmission Date: 20100710
  Serious: No
  Sender: FDA-Public Use
  Company Number: US-ALLERGAN-0904118US

PATIENT
  Age: 55 Year
  Sex: Female

DRUGS (3)
  1. RESTASIS [Suspect]
     Indication: DRY EYE
     Dosage: 1 GTT, Q12H
     Route: 047
     Dates: start: 20090322, end: 20090323
  2. ATENOLOL [Concomitant]
     Indication: HYPERTENSION
  3. ASPIRIN [Concomitant]

REACTIONS (3)
  - ERYTHEMA OF EYELID [None]
  - EYE IRRITATION [None]
  - EYELID OEDEMA [None]
